FAERS Safety Report 8929230 (Version 1)
Quarter: 2012Q4

REPORT INFORMATION
  Report Type: Spontaneous
  Country: US (occurrence: None)
  Receive Date: 20121126
  Receipt Date: 20121126
  Transmission Date: 20130627
  Serious: Yes (Life-Threatening, Hospitalization, Disabling, Other)
  Sender: FDA-Public Use
  Company Number: None

PATIENT
  Age: 86 Year
  Sex: Male
  Weight: 65.77 kg

DRUGS (1)
  1. CLOPIDOGREL [Suspect]
     Indication: ANTICOAGULANT THERAPY
     Dates: start: 20120901, end: 20120904

REACTIONS (4)
  - Rectal haemorrhage [None]
  - Haemorrhage [None]
  - Asthenia [None]
  - Anxiety [None]
